FAERS Safety Report 9799656 (Version 1)
Quarter: 2014Q1

REPORT INFORMATION
  Report Type: Spontaneous
  Country: US (occurrence: US)
  Receive Date: 20140106
  Receipt Date: 20140106
  Transmission Date: 20141002
  Serious: Yes (Other)
  Sender: FDA-Public Use
  Company Number: US-GILEAD-2010-0032004

PATIENT
  Age: 66 Year
  Sex: Female

DRUGS (10)
  1. LETAIRIS [Suspect]
     Indication: PULMONARY HYPERTENSION
     Route: 048
     Dates: start: 20100420, end: 20100628
  2. LASIX [Concomitant]
  3. DILTIAZEM [Concomitant]
  4. VITAMIN D [Concomitant]
  5. FLONASE [Concomitant]
  6. LOSARTAN [Concomitant]
  7. LOVASTATIN [Concomitant]
  8. PROAIR [Concomitant]
  9. SPIRIVA [Concomitant]
  10. GLIPIZIDE [Concomitant]

REACTIONS (1)
  - Oedema peripheral [Unknown]
